FAERS Safety Report 4918409-6 (Version None)
Quarter: 2006Q1

REPORT INFORMATION
  Report Type: 
  Country: None (occurrence: None)
  Receive Date: 20060214
  Receipt Date: 20060126
  Transmission Date: 20060701
  Serious: Yes (Hospitalization)
  Sender: FDA-Public Use
  Company Number: DE200512000579

PATIENT
  Age: 73 Year
  Sex: Female
  Weight: 72 kg

DRUGS (3)
  1. TERIPARATIDE (TERIPARATIDE) PEN, DISPOSABLE [Suspect]
     Indication: OSTEOPOROSIS
     Dosage: 20 UG, DAILY (1/D),
     Dates: start: 20040625, end: 20051201
  2. FORTEO [Concomitant]
  3. CALCIUM W/VITAMIN D NOS (CALCIUM, VITAMIN D NOS) [Concomitant]

REACTIONS (5)
  - BONE PAIN [None]
  - DIFFICULTY IN WALKING [None]
  - IMPAIRED HEALING [None]
  - OSTEOLYSIS [None]
  - PSEUDARTHROSIS [None]
